FAERS Safety Report 16348326 (Version 1)
Quarter: 2019Q2

REPORT INFORMATION
  Report Type: Report from Study
  Country: US (occurrence: US)
  Receive Date: 20190523
  Receipt Date: 20190523
  Transmission Date: 20190711
  Serious: Yes (Hospitalization, Other)
  Sender: FDA-Public Use
  Company Number: US-GILEAD-2019-0409420

PATIENT
  Age: 68 Year
  Sex: Female

DRUGS (10)
  1. FERROUS SULFATE. [Concomitant]
     Active Substance: FERROUS SULFATE
  2. REMODULIN [Concomitant]
     Active Substance: TREPROSTINIL
  3. SPIRONOLACTONE. [Concomitant]
     Active Substance: SPIRONOLACTONE
  4. ADCIRCA [Concomitant]
     Active Substance: TADALAFIL
  5. ELIQUIS [Concomitant]
     Active Substance: APIXABAN
  6. NEXIUM I.V. [Concomitant]
     Active Substance: ESOMEPRAZOLE SODIUM
  7. POTASSIUM [Concomitant]
     Active Substance: POTASSIUM
  8. AMBRISENTAN [Suspect]
     Active Substance: AMBRISENTAN
     Indication: PULMONARY HYPERTENSION
     Dosage: 10 MG, QD
     Route: 065
     Dates: start: 20141021
  9. DIGOXIN. [Concomitant]
     Active Substance: DIGOXIN
  10. LASIX [Concomitant]
     Active Substance: FUROSEMIDE

REACTIONS (1)
  - Pulmonary hypertension [Unknown]
